FAERS Safety Report 6826624-X (Version None)
Quarter: 2010Q3

REPORT INFORMATION
  Report Type: 
  Country: None (occurrence: None)
  Receive Date: 20100709
  Receipt Date: 20100701
  Transmission Date: 20110219
  Serious: Yes (Other)
  Sender: FDA-Public Use
  Company Number: US-PFIZER INC-2010083758

PATIENT
  Sex: Female

DRUGS (5)
  1. LIPITOR [Suspect]
     Indication: BLOOD CHOLESTEROL INCREASED
     Dosage: 80 MG, 1X/DAY
     Route: 048
     Dates: start: 20100312
  2. NORVASC [Concomitant]
     Indication: HYPERTENSION
     Dosage: 5 MG, 2X/DAY
     Route: 048
  3. NEBIVOLOL [Concomitant]
     Indication: HYPERTENSION
     Dosage: 10 MG, 1X/DAY
     Route: 048
  4. LEXAPRO [Concomitant]
     Indication: HEADACHE
     Dosage: 10 MG, 1X/DAY
     Route: 048
  5. PLAVIX [Concomitant]
     Indication: CEREBROVASCULAR ACCIDENT
     Dosage: 75 MG, 1X/DAY
     Route: 048

REACTIONS (1)
  - BLOOD POTASSIUM DECREASED [None]
